FAERS Safety Report 19697272 (Version 1)
Quarter: 2021Q3

REPORT INFORMATION
  Report Type: Spontaneous
  Country: JP (occurrence: JP)
  Receive Date: 20210813
  Receipt Date: 20210813
  Transmission Date: 20211014
  Serious: Yes (Other)
  Sender: FDA-Public Use
  Company Number: JP-009507513-2108JPN000358J

PATIENT
  Age: 88 Year
  Sex: Male

DRUGS (2)
  1. BELSOMRA [Suspect]
     Active Substance: SUVOREXANT
     Indication: INSOMNIA
     Dosage: 15 MILLIGRAM, QD
     Route: 048
     Dates: start: 20210715, end: 20210802
  2. GOREISAN [ALISMA ORIENTALE TUBER;ATRACTYLODES LANCEA RHIZOME;CINNAMOMU [Concomitant]
     Dosage: UNK
     Route: 048
     Dates: end: 20210802

REACTIONS (1)
  - Toxic skin eruption [Recovering/Resolving]

NARRATIVE: CASE EVENT DATE: 20210802
